FAERS Safety Report 5535253-X (Version None)
Quarter: 2007Q4

REPORT INFORMATION
  Report Type: 
  Country: None (occurrence: None)
  Receive Date: 20071206
  Receipt Date: 20071126
  Transmission Date: 20080405
  Serious: Yes (Other)
  Sender: FDA-Public Use
  Company Number: US-KINGPHARMUSA00001-K200701523

PATIENT

DRUGS (1)
  1. ALTACE [Suspect]
     Indication: HYPERTENSION
     Dates: start: 20070101, end: 20070101

REACTIONS (4)
  - BLOOD PRESSURE INCREASED [None]
  - DISCOMFORT [None]
  - DRUG INEFFECTIVE [None]
  - NAUSEA [None]
